FAERS Safety Report 25085679 (Version 1)
Quarter: 2025Q1

REPORT INFORMATION
  Report Type: Spontaneous
  Country: US (occurrence: None)
  Receive Date: 20250315
  Receipt Date: 20250315
  Transmission Date: 20250408
  Serious: Yes (Other)
  Sender: FDA-CTU
  Company Number: None

PATIENT
  Age: 37 Year
  Sex: Female
  Weight: 48.6 kg

DRUGS (1)
  1. LA ROCHE POSAY LABORATOIRE DERMATOLOGIQUE EFFACLAR DUO ACNE TREATMENT [Suspect]
     Active Substance: BENZOYL PEROXIDE
     Indication: Acne
     Dosage: FREQUENCY : AT BEDTIME;?
     Route: 061
     Dates: start: 20250101, end: 20250112

REACTIONS (2)
  - Rash [None]
  - Rash erythematous [None]

NARRATIVE: CASE EVENT DATE: 20250110
